FAERS Safety Report 4480834-8 (Version None)
Quarter: 2004Q4

REPORT INFORMATION
  Report Type: 
  Country: None (occurrence: None)
  Receive Date: 20041021
  Receipt Date: 20040223
  Transmission Date: 20050328
  Serious: Yes (Hospitalization)
  Sender: FDA-Public Use
  Company Number: FR-ABBOTT-04P-056-0251559-00

PATIENT
  Age: 52 Year
  Sex: Female

DRUGS (5)
  1. ISOPTIN [Suspect]
     Indication: DRUG USE FOR UNKNOWN INDICATION
     Route: 048
     Dates: start: 20040108, end: 20040119
  2. ALPRAZOLAM [Concomitant]
     Indication: DRUG USE FOR UNKNOWN INDICATION
     Route: 048
     Dates: start: 20030101
  3. DIOSMIN [Concomitant]
     Indication: DRUG USE FOR UNKNOWN INDICATION
     Route: 048
     Dates: start: 20010101
  4. LISINOPRIL [Concomitant]
     Indication: DRUG USE FOR UNKNOWN INDICATION
     Route: 048
     Dates: start: 20010101
  5. PAROXETINE [Concomitant]
     Indication: DRUG USE FOR UNKNOWN INDICATION
     Route: 048
     Dates: start: 20020101

REACTIONS (6)
  - EPSTEIN-BARR VIRUS ANTIBODY POSITIVE [None]
  - LEUKOPENIA [None]
  - NEUTROPENIA [None]
  - PARVOVIRUS B19 SEROLOGY POSITIVE [None]
  - PRURITUS [None]
  - TOXIC SKIN ERUPTION [None]
